FAERS Safety Report 17365949 (Version 2)
Quarter: 2020Q1

REPORT INFORMATION
  Report Type: Spontaneous
  Country: JP (occurrence: JP)
  Receive Date: 20200204
  Receipt Date: 20200224
  Transmission Date: 20200409
  Serious: Yes (Other)
  Sender: FDA-Public Use
  Company Number: NVSC2020JP025488

PATIENT
  Age: 73 Year
  Sex: Female

DRUGS (2)
  1. RECLAST [Suspect]
     Active Substance: ZOLEDRONIC ACID
     Indication: PRODUCT USED FOR UNKNOWN INDICATION
     Dosage: 5 MG, Q12MO
     Route: 041
     Dates: start: 20180227, end: 20180227
  2. EDIROL [Concomitant]
     Active Substance: ELDECALCITOL
     Indication: PRODUCT USED FOR UNKNOWN INDICATION
     Dosage: 0.5 UG
     Route: 048
     Dates: start: 20180220

REACTIONS (5)
  - Gastrointestinal tract adenoma [Unknown]
  - Gingival swelling [Unknown]
  - Gingivitis [Unknown]
  - Gingival bleeding [Unknown]
  - Tooth fracture [Unknown]

NARRATIVE: CASE EVENT DATE: 201811
